FAERS Safety Report 6997624-4 (Version None)
Quarter: 2010Q3

REPORT INFORMATION
  Report Type: 
  Country: None (occurrence: None)
  Receive Date: 20100918
  Receipt Date: 20091109
  Transmission Date: 20110219
  Serious: Yes (Hospitalization)
  Sender: FDA-Public Use
  Company Number: US-WYE-H12117309

PATIENT

DRUGS (2)
  1. PRISTIQ [Suspect]
  2. PRISTIQ [Suspect]

REACTIONS (1)
  - SEROTONIN SYNDROME [None]
